FAERS Safety Report 5402616-2 (Version None)
Quarter: 2007Q3

REPORT INFORMATION
  Report Type: 
  Country: None (occurrence: None)
  Receive Date: 20070801
  Receipt Date: 20070316
  Transmission Date: 20080115
  Serious: No
  Sender: FDA-Public Use
  Company Number: A0641211A

PATIENT

DRUGS (1)
  1. IMITREX [Suspect]
     Indication: MIGRAINE
     Dosage: 100MG AS REQUIRED
     Route: 048

REACTIONS (6)
  - DIZZINESS [None]
  - MIGRAINE [None]
  - SENSORY DISTURBANCE [None]
  - SOMNOLENCE [None]
  - THERAPEUTIC RESPONSE DECREASED [None]
  - WRONG TECHNIQUE IN DRUG USAGE PROCESS [None]
